FAERS Safety Report 13969882 (Version 2)
Quarter: 2017Q3

REPORT INFORMATION
  Report Type: Spontaneous
  Country: JP (occurrence: JP)
  Receive Date: 20170914
  Receipt Date: 20170920
  Transmission Date: 20171128
  Serious: Yes (Death, Other)
  Sender: FDA-Public Use
  Company Number: JP-PFIZER INC-2017393554

PATIENT
  Age: 56 Year
  Sex: Male

DRUGS (1)
  1. INLYTA [Suspect]
     Active Substance: AXITINIB
     Indication: RENAL CANCER METASTATIC
     Dosage: 10 MG, DAILY
     Dates: start: 20141014

REACTIONS (7)
  - Neoplasm progression [Fatal]
  - Anal incontinence [Unknown]
  - Urinary retention [Unknown]
  - Paraneoplastic neurological syndrome [Unknown]
  - Muscular weakness [Unknown]
  - Diarrhoea [Unknown]
  - Gait disturbance [Unknown]

NARRATIVE: CASE EVENT DATE: 201501
